FAERS Safety Report 4546035-X (Version None)
Quarter: 2005Q1

REPORT INFORMATION
  Report Type: 
  Country: None (occurrence: None)
  Receive Date: 20050103
  Receipt Date: 20041221
  Transmission Date: 20050727
  Serious: Yes (Hospitalization)
  Sender: FDA-Public Use
  Company Number: 2004UW22805

PATIENT
  Age: 62 Year
  Sex: Female
  Weight: 72 kg

DRUGS (12)
  1. IRESSA [Suspect]
     Indication: NON-SMALL CELL LUNG CANCER METASTATIC
     Dosage: 250 MG QD PO
     Route: 048
     Dates: start: 20031215, end: 20040823
  2. IRESSA [Suspect]
     Indication: NON-SMALL CELL LUNG CANCER METASTATIC
     Dosage: 250 MG QD PO
     Route: 048
     Dates: start: 20040916, end: 20041015
  3. IRESSA [Suspect]
     Indication: NON-SMALL CELL LUNG CANCER METASTATIC
     Dosage: 250 MG QD PO
     Route: 048
     Dates: start: 20041018, end: 20041101
  4. IRESSA [Suspect]
     Indication: NON-SMALL CELL LUNG CANCER METASTATIC
     Dates: start: 20041101
  5. TYLENOL [Concomitant]
  6. PROTONIX [Concomitant]
  7. PREMARIN [Concomitant]
  8. CLEOCIN T [Concomitant]
  9. BACTRIM [Concomitant]
  10. IMODIUM [Concomitant]
  11. MULTI-VITAMINS [Concomitant]
  12. CIPROFLOXACIN [Concomitant]

REACTIONS (4)
  - DEHYDRATION [None]
  - HEPATITIS TOXIC [None]
  - RENAL FAILURE ACUTE [None]
  - URINARY TRACT INFECTION [None]
